FAERS Safety Report 19723117 (Version 1)
Quarter: 2021Q3

REPORT INFORMATION
  Report Type: Spontaneous
  Country: DE (occurrence: DE)
  Receive Date: 20210820
  Receipt Date: 20210820
  Transmission Date: 20211014
  Serious: Yes (Disabling, Other)
  Sender: FDA-Public Use
  Company Number: DE-AUROBINDO-AUR-APL-2018-003503

PATIENT
  Age: 45 Year
  Sex: Male

DRUGS (14)
  1. BEPANTHEN [Concomitant]
     Indication: PRODUCT USED FOR UNKNOWN INDICATION
     Dosage: UNK
     Route: 045
  2. SIMVASTATIN. [Suspect]
     Active Substance: SIMVASTATIN
     Indication: PROPHYLAXIS
     Dosage: 20 MILLIGRAM
     Route: 065
     Dates: start: 2007
  3. ESPUMISAN [Concomitant]
     Active Substance: DIMETHICONE
     Indication: PRODUCT USED FOR UNKNOWN INDICATION
     Dosage: UNK
     Route: 065
  4. HYDROCHLOROTHIAZIDE. [Concomitant]
     Active Substance: HYDROCHLOROTHIAZIDE
     Indication: HYPERTENSION
     Dosage: UNK
     Route: 065
  5. PROCORALAN [Suspect]
     Active Substance: IVABRADINE
     Indication: ARRHYTHMIA
     Dosage: UNK
     Route: 065
     Dates: start: 2009
  6. OMEGA 3 [Concomitant]
     Active Substance: OMEGA-3 FATTY ACIDS
     Indication: MYOCARDIAL INFARCTION
     Dosage: UNK
     Route: 065
  7. ZODIN [Concomitant]
     Indication: PROPHYLAXIS
     Dosage: UNK
     Route: 065
  8. ASPIRIN. [Concomitant]
     Active Substance: ASPIRIN
     Indication: MYOCARDIAL INFARCTION
     Dosage: UNK
     Route: 065
  9. RAMIPRIL. [Concomitant]
     Active Substance: RAMIPRIL
     Indication: HYPERTENSION
     Dosage: UNK
     Route: 065
  10. SPIRONOLACTON [Concomitant]
     Active Substance: SPIRONOLACTONE
     Indication: PRODUCT USED FOR UNKNOWN INDICATION
     Dosage: UNK
     Route: 065
  11. BISOPROLOL [Concomitant]
     Active Substance: BISOPROLOL
     Indication: PRODUCT USED FOR UNKNOWN INDICATION
     Dosage: UNK
     Route: 065
  12. RAMIPRIL COMP [Concomitant]
     Active Substance: HYDROCHLOROTHIAZIDE\RAMIPRIL
     Indication: HYPERTENSION
     Dosage: UNK
     Route: 065
  13. ASPECTON [Concomitant]
     Indication: PRODUCT USED FOR UNKNOWN INDICATION
     Dosage: UNK
     Route: 045
  14. PARACETAMOL [Concomitant]
     Active Substance: ACETAMINOPHEN
     Indication: PRODUCT USED FOR UNKNOWN INDICATION
     Dosage: UNK
     Route: 065

REACTIONS (4)
  - Tendon rupture [Recovered/Resolved with Sequelae]
  - Tendon disorder [Recovered/Resolved with Sequelae]
  - Trigger finger [Recovered/Resolved with Sequelae]
  - Tenosynovitis [Not Recovered/Not Resolved]

NARRATIVE: CASE EVENT DATE: 2015
